FAERS Safety Report 19262876 (Version 1)
Quarter: 2021Q2

REPORT INFORMATION
  Report Type: Spontaneous
  Country: US (occurrence: US)
  Receive Date: 20210517
  Receipt Date: 20210517
  Transmission Date: 20210717
  Serious: No
  Sender: FDA-Public Use
  Company Number: US-LUPIN PHARMACEUTICALS INC.-2021-01044

PATIENT
  Age: 66 Year
  Sex: Female

DRUGS (3)
  1. QUETIAPINE. [Concomitant]
     Active Substance: QUETIAPINE
     Indication: KORSAKOFF^S SYNDROME
     Dosage: UNK
     Route: 065
  2. DONEPEZIL. [Suspect]
     Active Substance: DONEPEZIL
     Indication: KORSAKOFF^S SYNDROME
     Dosage: UNK
     Route: 065
  3. MIRTAZAPINE. [Concomitant]
     Active Substance: MIRTAZAPINE
     Indication: KORSAKOFF^S SYNDROME
     Dosage: UNK
     Route: 065

REACTIONS (1)
  - Off label use [Unknown]
